FAERS Safety Report 16430712 (Version 3)
Quarter: 2019Q3

REPORT INFORMATION
  Report Type: Report from Study
  Country: KR (occurrence: KR)
  Receive Date: 20190614
  Receipt Date: 20190816
  Transmission Date: 20191004
  Serious: Yes (Hospitalization)
  Sender: FDA-Public Use
  Company Number: KR-ROCHE-2336892

PATIENT
  Age: 56 Year
  Sex: Male
  Weight: 68.8 kg

DRUGS (17)
  1. DALTEPARIN [Concomitant]
     Active Substance: DALTEPARIN
     Indication: AORTIC THROMBOSIS
     Route: 065
     Dates: start: 20190227, end: 20190611
  2. CHLORPHENIRAMINE MALEATE. [Concomitant]
     Active Substance: CHLORPHENIRAMINE MALEATE
     Route: 065
     Dates: start: 20190610, end: 20190610
  3. SUSPEN ER [Concomitant]
     Route: 065
     Dates: start: 20190610, end: 20190611
  4. MEGACE [Concomitant]
     Active Substance: MEGESTROL ACETATE
     Route: 065
     Dates: start: 20190722
  5. RANITIDINE. [Concomitant]
     Active Substance: RANITIDINE
     Route: 065
     Dates: start: 20190610, end: 20190610
  6. GRANISETRON [Concomitant]
     Active Substance: GRANISETRON
     Route: 065
     Dates: start: 20190610, end: 20190610
  7. ROSUVASTATIN. [Concomitant]
     Active Substance: ROSUVASTATIN
     Route: 065
     Dates: start: 20190227, end: 20190612
  8. ROSUVASTATIN. [Concomitant]
     Active Substance: ROSUVASTATIN
     Route: 065
     Dates: start: 20190618
  9. METOCLOPRAMIDE. [Concomitant]
     Active Substance: METOCLOPRAMIDE
     Route: 065
     Dates: start: 20190610, end: 20190610
  10. MEGACE [Concomitant]
     Active Substance: MEGESTROL ACETATE
     Indication: SUPPORTIVE CARE
     Route: 065
     Dates: start: 20190614, end: 20190614
  11. ATEZOLIZUMAB. [Suspect]
     Active Substance: ATEZOLIZUMAB
     Indication: NEOPLASM
     Dosage: DATE OF MOST RECENT DOSE OF ATEZOLIZUMAB PRIOR TO AE/SAE 10/JUN/2019 AT 10:38
     Route: 042
     Dates: start: 20190610
  12. ACLOFEN [Concomitant]
     Route: 065
     Dates: start: 20190610, end: 20190612
  13. DALTEPARIN [Concomitant]
     Active Substance: DALTEPARIN
     Indication: AORTIC THROMBOSIS
     Route: 065
     Dates: start: 20190618
  14. AMBRECT [Concomitant]
     Indication: SUPPORTIVE CARE
     Route: 065
     Dates: start: 20190524, end: 20190611
  15. RO6874281 (FAP IL2V MAB) [Suspect]
     Active Substance: SIMLUKAFUSP ALFA
     Indication: NEOPLASM
     Dosage: DATE OF MOST RECENT DOSE OF RO6874281 PRIOR TO AE/SAE ONSET 10/JUN/2019 AT 13:40 10 MG
     Route: 042
     Dates: start: 20190610
  16. AMBRECT [Concomitant]
     Route: 065
     Dates: start: 20190618
  17. ASPIRIN PROTECT [Concomitant]
     Active Substance: ASPIRIN
     Indication: SUPPORTIVE CARE
     Route: 065
     Dates: start: 20190610, end: 20190612

REACTIONS (2)
  - Acute kidney injury [Recovered/Resolved]
  - Liver function test abnormal [Recovered/Resolved]

NARRATIVE: CASE EVENT DATE: 20190612
